FAERS Safety Report 18061566 (Version 4)
Quarter: 2021Q4

REPORT INFORMATION
  Report Type: Report from Study
  Country: US (occurrence: US)
  Receive Date: 20200723
  Receipt Date: 20211123
  Transmission Date: 20220304
  Serious: Yes (Death, Life-Threatening, Hospitalization)
  Sender: FDA-Public Use
  Company Number: US-009507513-2006USA006368

PATIENT
  Age: 55 Year
  Sex: Female
  Weight: 70.2 kg

DRUGS (43)
  1. PACLITAXEL [Suspect]
     Active Substance: PACLITAXEL
     Indication: Non-small cell lung cancer stage IV
     Dosage: 100 MILLIGRAM/SQ. METER ON DAY 1, DAY 8 AND DAY 15, Q3W
     Route: 042
     Dates: start: 20200324, end: 20200602
  2. PACLITAXEL [Suspect]
     Active Substance: PACLITAXEL
     Dosage: 100 MILLIGRAM/SQ. METER ON DAY 1, DAY 8 AND DAY 15, Q3W
     Route: 042
     Dates: start: 20200609, end: 20200609
  3. PEMBROLIZUMAB [Suspect]
     Active Substance: PEMBROLIZUMAB
     Indication: Non-small cell lung cancer stage IV
     Dosage: 200 MILLIGRAM, Q3W
     Route: 042
     Dates: start: 20200324, end: 20200505
  4. PEMBROLIZUMAB [Suspect]
     Active Substance: PEMBROLIZUMAB
     Dosage: 200 MILLIGRAM, Q3W
     Route: 042
     Dates: start: 20200602, end: 20200602
  5. CARBOPLATIN [Suspect]
     Active Substance: CARBOPLATIN
     Indication: Non-small cell lung cancer stage IV
     Dosage: AREA UNDER CURVE (AUC) 6 MG/ML/MIN, Q3W
     Route: 042
     Dates: start: 20200324, end: 20200505
  6. CARBOPLATIN [Suspect]
     Active Substance: CARBOPLATIN
     Dosage: AUC 6 MG/ML/MIN, Q3W
     Route: 042
     Dates: start: 20200602, end: 20200602
  7. CETIRIZINE HYDROCHLORIDE [Concomitant]
     Active Substance: CETIRIZINE HYDROCHLORIDE
     Indication: Seasonal allergy
     Dosage: 10 MILLIGRAM, QD
     Route: 048
     Dates: start: 201401
  8. ROSUVASTATIN [Concomitant]
     Active Substance: ROSUVASTATIN
     Indication: Hyperlipidaemia
     Dosage: 20 MILLIGRAM, QD
     Route: 048
     Dates: start: 201401
  9. CLOPIDOGREL [Concomitant]
     Active Substance: CLOPIDOGREL BISULFATE
     Indication: Peripheral vascular disorder
     Dosage: 75 MILLIGRAM, QD
     Route: 048
     Dates: start: 201401
  10. CALCIUM [Concomitant]
     Active Substance: CALCIUM
     Indication: Routine health maintenance
     Dosage: 600 MILLIGRAM, QD
     Route: 048
     Dates: start: 201401
  11. METFORMIN [Concomitant]
     Active Substance: METFORMIN HYDROCHLORIDE
     Indication: Type 2 diabetes mellitus
     Dosage: 1000 MILLIGRAM
     Route: 048
     Dates: start: 201801
  12. AMLODIPINE [Concomitant]
     Active Substance: AMLODIPINE BESYLATE
     Indication: Hypertension
     Dosage: 10 MILLIGRAM, QD
     Route: 048
     Dates: start: 201401, end: 20200623
  13. VITAMINS [Concomitant]
     Active Substance: VITAMINS
     Indication: Routine health maintenance
     Dosage: 1 TABLET, QD
     Route: 048
     Dates: start: 201401
  14. CILOSTAZOL [Concomitant]
     Active Substance: CILOSTAZOL
     Indication: Peripheral vascular disorder
     Dosage: 200 MILLIGRAM
     Route: 048
     Dates: start: 201401
  15. METOPROLOL SUCCINATE [Concomitant]
     Active Substance: METOPROLOL SUCCINATE
     Indication: Hypertension
     Dosage: 25 MILLIGRAM
     Route: 048
     Dates: start: 201901, end: 20200623
  16. VITAMIN D NOS [Concomitant]
     Active Substance: VITAMIN D NOS
     Indication: Routine health maintenance
     Dosage: 200 MILLIGRAM, QD
     Route: 048
     Dates: start: 201401
  17. ONDANSETRON [Concomitant]
     Active Substance: ONDANSETRON
     Indication: Nausea
     Dosage: 24 MILLIGRAM
     Route: 048
     Dates: start: 20200401
  18. ONDANSETRON [Concomitant]
     Active Substance: ONDANSETRON
     Indication: Premedication
     Dosage: 16 MILLIGRAM, ONCE
     Route: 042
     Dates: start: 20200602, end: 20200602
  19. ONDANSETRON [Concomitant]
     Active Substance: ONDANSETRON
     Indication: Pancreatitis acute
  20. PROCHLORPERAZINE [Concomitant]
     Active Substance: PROCHLORPERAZINE
     Indication: Nausea
     Route: 048
     Dates: start: 20200401
  21. PROCHLORPERAZINE [Concomitant]
     Active Substance: PROCHLORPERAZINE
     Indication: Pancreatitis acute
     Route: 041
  22. NYSTATIN [Concomitant]
     Active Substance: NYSTATIN
     Indication: Rash erythematous
     Dosage: 2 DOSAGE FORMS
     Route: 061
     Dates: start: 20200407
  23. DIPHENHYDRAMINE [Concomitant]
     Active Substance: DIPHENHYDRAMINE
     Indication: Pruritus
     Dosage: TOTAL DAILY DOSE: 25 MILLIGRAM
     Route: 048
     Dates: start: 20200405
  24. DIPHENHYDRAMINE [Concomitant]
     Active Substance: DIPHENHYDRAMINE
     Indication: Delirium
  25. HYDROCORTISONE ACETATE [Concomitant]
     Active Substance: HYDROCORTISONE ACETATE
     Indication: Rash erythematous
     Dosage: TOTAL DAILY DOSE: 1 APPLICATION
     Route: 061
     Dates: start: 20200406
  26. K-DUR [Concomitant]
     Active Substance: POTASSIUM CHLORIDE
     Indication: Hypokalaemia
     Dosage: 40 MILLIEQUIVALENTS
     Route: 048
     Dates: start: 20200421, end: 20200608
  27. K-DUR [Concomitant]
     Active Substance: POTASSIUM CHLORIDE
     Dosage: 60 MILLIEQUIVALENTS
     Route: 048
     Dates: start: 20200609, end: 20200611
  28. NITROGLYCERIN [Concomitant]
     Active Substance: NITROGLYCERIN
     Indication: Chest pain
     Dosage: TOTAL DAILY DOSE: 0.4 MILLIGRAM
     Route: 060
     Dates: start: 201801
  29. LOPERAMIDE [Concomitant]
     Active Substance: LOPERAMIDE
     Indication: Diarrhoea
     Dosage: 8 MG
     Route: 048
     Dates: start: 20200516
  30. AMOXICILLIN\CLAVULANATE POTASSIUM [Concomitant]
     Active Substance: AMOXICILLIN\CLAVULANATE POTASSIUM
     Indication: Pneumonia
     Dosage: 2 TABLET
     Route: 048
     Dates: start: 20200510
  31. DOXYCYCLINE HYCLATE [Concomitant]
     Active Substance: DOXYCYCLINE HYCLATE
     Indication: Pneumonia
     Dosage: 200 MILLIGRAM
     Route: 048
     Dates: start: 20200510
  32. POTASSIUM PHOSPHATE, DIBASIC [Concomitant]
     Active Substance: POTASSIUM PHOSPHATE, DIBASIC
     Indication: Product used for unknown indication
     Route: 065
  33. LORAZEPAM [Concomitant]
     Active Substance: LORAZEPAM
     Indication: Delirium
     Route: 041
  34. CIPROFLOXACIN [Concomitant]
     Active Substance: CIPROFLOXACIN
     Indication: Urinary tract infection
     Route: 065
  35. ATORVASTATIN [Concomitant]
     Active Substance: ATORVASTATIN
     Indication: Hyperlipidaemia
     Route: 065
  36. BACITRACIN [Concomitant]
     Active Substance: BACITRACIN
     Indication: Infection prophylaxis
     Route: 065
  37. CEFTRIAXONE [Concomitant]
     Active Substance: CEFTRIAXONE
     Indication: Urinary tract infection
     Route: 065
  38. FONDAPARINUX SODIUM [Concomitant]
     Active Substance: FONDAPARINUX SODIUM
     Indication: Deep vein thrombosis
     Route: 065
  39. INSULIN ASPART [Concomitant]
     Active Substance: INSULIN ASPART
     Indication: Type 2 diabetes mellitus
     Route: 065
  40. IPRATROPIUM BROMIDE [Concomitant]
     Active Substance: IPRATROPIUM BROMIDE
     Indication: Dyspnoea
     Route: 065
  41. SENNA [Concomitant]
     Active Substance: SENNA LEAF\SENNOSIDES\SENNOSIDES A AND B
     Indication: Constipation prophylaxis
     Route: 065
  42. ALBUTEROL [Concomitant]
     Active Substance: ALBUTEROL
     Indication: Dyspnoea
     Route: 065
  43. Marijuana Gummies [Concomitant]
     Indication: Product used for unknown indication
     Route: 065

REACTIONS (2)
  - Gastrointestinal haemorrhage [Fatal]
  - Gastritis [Not Recovered/Not Resolved]

NARRATIVE: CASE EVENT DATE: 20200611
